FAERS Safety Report 25669100 (Version 1)
Quarter: 2025Q3

REPORT INFORMATION
  Report Type: Spontaneous
  Country: NZ (occurrence: NZ)
  Receive Date: 20250812
  Receipt Date: 20250812
  Transmission Date: 20251021
  Serious: Yes (Other)
  Sender: RANBAXY
  Company Number: NZ-SUN PHARMACEUTICAL INDUSTRIES LTD-2025RR-521936

PATIENT
  Age: 69 Year
  Sex: Female

DRUGS (3)
  1. CARBOPLATIN [Suspect]
     Active Substance: CARBOPLATIN
     Indication: Lung neoplasm malignant
     Route: 065
  2. PEMETREXED [Suspect]
     Active Substance: PEMETREXED
     Indication: Lung neoplasm malignant
     Route: 065
  3. PEMBROLIZUMAB [Suspect]
     Active Substance: PEMBROLIZUMAB
     Indication: Lung neoplasm malignant
     Route: 065

REACTIONS (6)
  - Skin induration [Recovering/Resolving]
  - Face oedema [Unknown]
  - Oedema peripheral [Unknown]
  - Exophthalmos [Unknown]
  - Joint stiffness [Unknown]
  - Lymphopenia [Unknown]
